FAERS Safety Report 5121784-3 (Version None)
Quarter: 2006Q4

REPORT INFORMATION
  Report Type: 
  Country: None (occurrence: None)
  Receive Date: 20061003
  Receipt Date: 20060914
  Transmission Date: 20070319
  Serious: Yes (Life-Threatening, Other)
  Sender: FDA-Public Use
  Company Number: 2006-07-1271

PATIENT
  Age: 49 Year
  Sex: Male
  Weight: 85 kg

DRUGS (8)
  1. AERIUS [Suspect]
     Indication: PRURITUS
     Dosage: 1 DF; QD; PO
     Route: 048
     Dates: start: 20060520, end: 20060607
  2. HYDROCORTISONE ACETATE [Suspect]
     Indication: ADRENAL CORTICAL INSUFFICIENCY
     Dosage: 50 MG; QD; PO
     Route: 048
     Dates: start: 20050715
  3. FLUDARABINE PHOSPHATE [Suspect]
     Indication: WALDENSTROM'S MACROGLOBULINAEMIA
     Dates: start: 20051012, end: 20060323
  4. CYCLOPHOSPHAMIDE [Suspect]
     Indication: WALDENSTROM'S MACROGLOBULINAEMIA
     Dosage: 250 MG/M2
     Dates: start: 20051013, end: 20051015
  5. MABTHERA                             (RITUXIMAB) [Suspect]
     Indication: WALDENSTROM'S MACROGLOBULINAEMIA
     Dates: start: 20051012, end: 20060323
  6. VALACYCLOVIR [Suspect]
     Indication: DRUG USE FOR UNKNOWN INDICATION
     Dosage: 500 MG; BID;PO
     Route: 048
     Dates: start: 20051015, end: 20060607
  7. RAMIPRIL [Suspect]
     Indication: CARDIAC FAILURE
     Dosage: 2.5 MG; QD; PO
     Route: 048
     Dates: start: 20050715, end: 20060607
  8. NEORECORMON                            (EPOETIN BETA) [Suspect]
     Indication: DRUG USE FOR UNKNOWN INDICATION
     Dosage: 30 KIU; QW; SC
     Route: 058
     Dates: start: 20051015

REACTIONS (5)
  - ANAEMIA [None]
  - APLASIA PURE RED CELL [None]
  - BONE MARROW FAILURE [None]
  - ERYTHEMA INFECTIOSUM [None]
  - IMMUNOSUPPRESSION [None]
